FAERS Safety Report 10166595 (Version 1)
Quarter: 2014Q2

REPORT INFORMATION
  Report Type: Spontaneous
  Country: US (occurrence: None)
  Receive Date: 20140509
  Receipt Date: 20140509
  Transmission Date: 20141212
  Serious: No
  Sender: FDA-Public Use
  Company Number: None

PATIENT
  Age: 50 Year
  Sex: Female

DRUGS (6)
  1. FORTEO 600 MCG LILLY [Suspect]
     Indication: PRODUCT USED FOR UNKNOWN INDICATION
     Route: 058
     Dates: start: 20140409
  2. CELEXA [Concomitant]
  3. ADVAIR [Concomitant]
  4. PRILOSEC [Concomitant]
  5. VENTOLIN HFA [Concomitant]
  6. IBUPROFEN [Concomitant]

REACTIONS (4)
  - Dyspnoea [None]
  - Headache [None]
  - Fatigue [None]
  - Nausea [None]
